FAERS Safety Report 5163707-7 (Version None)
Quarter: 2006Q4

REPORT INFORMATION
  Report Type: 
  Country: None (occurrence: None)
  Receive Date: 20061204
  Receipt Date: 20020701
  Transmission Date: 20070319
  Serious: Yes (Hospitalization)
  Sender: FDA-Public Use
  Company Number: FR-GLAXOSMITHKLINE-B0272896A

PATIENT
  Sex: Female
  Weight: 2.2 kg

DRUGS (10)
  1. RETROVIR [Suspect]
     Indication: ANTIVIRAL PROPHYLAXIS
     Route: 048
     Dates: start: 19941209, end: 19950120
  2. RETROVIR [Suspect]
     Indication: HIV INFECTION
     Dates: start: 19941001
  3. RETROVIR [Suspect]
     Dates: start: 19941209, end: 19941209
  4. ZOVIRAX [Concomitant]
     Route: 065
  5. SPASFON [Concomitant]
     Route: 065
  6. GYNOPEVARYL [Concomitant]
     Route: 067
  7. CLAMOXYL [Concomitant]
     Route: 048
  8. ACETAMINOPHEN W/ PROPOXYPHENE HCL [Concomitant]
     Route: 065
  9. IRON [Concomitant]
     Route: 048
  10. VITAMINS [Concomitant]
     Route: 048

REACTIONS (10)
  - AMBLYOPIA [None]
  - ANAEMIA MACROCYTIC [None]
  - ASTIGMATISM [None]
  - COMMUNICATION DISORDER [None]
  - DEVELOPMENTAL DELAY [None]
  - DRUG EXPOSURE DURING PREGNANCY [None]
  - HYPERMETROPIA [None]
  - MACROCYTOSIS [None]
  - THROMBOCYTHAEMIA [None]
  - VISUAL DISTURBANCE [None]
